FAERS Safety Report 8638237 (Version 5)
Quarter: 2013Q1

REPORT INFORMATION
  Report Type: Report from Study
  Country: CA (occurrence: CA)
  Receive Date: 20120627
  Receipt Date: 20130116
  Transmission Date: 20140127
  Serious: Yes (Hospitalization, Other)
  Sender: FDA-Public Use
  Company Number: PHHY2012CA053891

PATIENT
  Age: 66 Year
  Sex: Male

DRUGS (17)
  1. CLOZARIL [Suspect]
     Indication: BIPOLAR DISORDER
     Dosage: 250 MG, DAILY (50MG EVERY DAY BEFORE NOON AND 200 MG EVERY NIGHT AT BEDTIME)
     Route: 048
     Dates: start: 20021021
  2. CLOZARIL [Suspect]
     Dosage: 275 MG, DAILY
     Route: 048
     Dates: start: 20110712
  3. ROCALTROL [Concomitant]
     Dosage: 3 DF, TIW
     Route: 048
     Dates: start: 20120515
  4. SODIUM BICARBONATE [Concomitant]
     Dosage: 3 DF, BID
     Route: 048
  5. ALLOPURINOL [Concomitant]
     Dosage: 100 MG, QD
  6. CARVEDILOL [Concomitant]
     Dosage: 1 DF, BID
     Route: 048
     Dates: start: 20120607
  7. COLACE [Concomitant]
     Dosage: 100 MG, BID
  8. EPIVAL [Concomitant]
     Dosage: 500 MG QAM AND 750 MG QHS
  9. PANTOLOC [Concomitant]
     Dosage: 40 MG, QAM
  10. ZYLOPRIM [Concomitant]
     Dosage: 1 DF, QD
     Route: 048
     Dates: start: 20120515
  11. APO-CAL [Concomitant]
     Dosage: 1 DF, TID
     Route: 048
     Dates: start: 20120515
  12. TUMS [Concomitant]
     Dosage: 1 DF, QD
     Route: 048
     Dates: start: 20120111
  13. DIVALPROEX SODIUM [Concomitant]
     Dosage: 5 DF, (II QAM AND IIIQHS)
     Route: 048
     Dates: start: 20120515
  14. DOCUSATE [Concomitant]
     Dosage: 1 DF, BID
     Route: 048
     Dates: start: 20120515
  15. OMEPRAZOLE [Concomitant]
     Dosage: 1 DF, QD
     Route: 048
     Dates: start: 20110712
  16. PANTOPRAZOLE [Concomitant]
     Dosage: 1 DF, QD
     Route: 048
     Dates: start: 20120515
  17. SIMVASTATIN [Concomitant]
     Dosage: 1 DF, QD
     Route: 048
     Dates: start: 20110712

REACTIONS (23)
  - Mania [Recovered/Resolved]
  - Urinary tract infection [Unknown]
  - Hallucination, visual [Unknown]
  - Poor quality sleep [Unknown]
  - Speech disorder [Unknown]
  - Base excess decreased [Unknown]
  - Blood bicarbonate increased [Unknown]
  - Blood calcium decreased [Unknown]
  - Blood creatinine increased [Unknown]
  - Blood sodium increased [Unknown]
  - Blood urea increased [Unknown]
  - Glomerular filtration rate decreased [Unknown]
  - Haematocrit decreased [Unknown]
  - Lymphocyte count decreased [Unknown]
  - PCO2 decreased [Unknown]
  - Malaise [Unknown]
  - Red blood cell count decreased [Unknown]
  - Urine albumin/creatinine ratio increased [Unknown]
  - Agitation [Unknown]
  - Haemoglobin decreased [Unknown]
  - White blood cell count decreased [Unknown]
  - Platelet count decreased [Unknown]
  - Therapeutic response decreased [Unknown]
